FAERS Safety Report 9741984 (Version 3)
Quarter: 2014Q1

REPORT INFORMATION
  Report Type: Spontaneous
  Country: US (occurrence: US)
  Receive Date: 20131210
  Receipt Date: 20140124
  Transmission Date: 20141002
  Serious: No
  Sender: FDA-Public Use
  Company Number: US-PFIZER INC-2013351286

PATIENT
  Age: 58 Year
  Sex: Female
  Weight: 82.09 kg

DRUGS (1)
  1. VENLAFAXINE HCL [Suspect]
     Indication: DEPRESSION
     Dosage: 150 MG, 2X/DAY

REACTIONS (1)
  - Drug ineffective [Recovered/Resolved]
